FAERS Safety Report 6074240-2 (Version None)
Quarter: 2009Q1

REPORT INFORMATION
  Report Type: 
  Country: None (occurrence: None)
  Receive Date: 20090211
  Receipt Date: 20090202
  Transmission Date: 20090719
  Serious: Yes (Life-Threatening)
  Sender: FDA-Public Use
  Company Number: FR-GENENTECH-277019

PATIENT
  Sex: Female

DRUGS (5)
  1. HERCEPTIN [Suspect]
     Indication: BREAST CANCER
     Dosage: 350 MG, UNK
     Route: 042
     Dates: start: 20050901, end: 20051201
  2. HERCEPTIN [Suspect]
     Dosage: 350 MG, UNK
     Route: 042
     Dates: start: 20060601, end: 20070401
  3. EPIRUBICIN [Suspect]
     Indication: BREAST CANCER
     Dosage: 160 MG, UNK
     Route: 042
     Dates: start: 20050801, end: 20050901
  4. CYCLOPHOSPHAMIDE [Suspect]
     Indication: BREAST CANCER
     Dosage: 1000 MG, UNK
     Route: 042
     Dates: start: 20050801, end: 20050901
  5. PACLITAXEL [Suspect]
     Indication: BREAST CANCER
     Dosage: 120 MG, UNK
     Route: 042
     Dates: start: 20050901, end: 20051201

REACTIONS (2)
  - MYCOSIS FUNGOIDES [None]
  - T-CELL LYMPHOMA [None]
